FAERS Safety Report 9995261 (Version 1)
Quarter: 2014Q1

REPORT INFORMATION
  Report Type: Spontaneous
  Country: US (occurrence: None)
  Receive Date: 20140225
  Receipt Date: 20140225
  Transmission Date: 20141002
  Serious: Yes (Other)
  Sender: FDA-Public Use
  Company Number: 2013-230

PATIENT
  Age: 62 Year
  Sex: Female

DRUGS (3)
  1. PRIALT (ZICONOTIDE) INTRATHECAL INFUSION [Suspect]
     Indication: SPINAL PAIN
     Route: 037
  2. BENTYL (DICYCLOVERINE HYDROCHLORIDE) [Concomitant]
  3. REGLAN (METOCLAMPRAMIDE HYDROCHLORIDE) [Concomitant]

REACTIONS (11)
  - Hallucination [None]
  - Pelvic pain [None]
  - Sciatica [None]
  - Groin pain [None]
  - Stress [None]
  - Incoherent [None]
  - Affect lability [None]
  - Drug ineffective [None]
  - Nausea [None]
  - Device issue [None]
  - Irritability [None]
